FAERS Safety Report 9892653 (Version 3)
Quarter: 2014Q1

REPORT INFORMATION
  Report Type: Report from Study
  Country: KR (occurrence: KR)
  Receive Date: 20140212
  Receipt Date: 20140220
  Transmission Date: 20141002
  Serious: Yes (Hospitalization)
  Sender: FDA-Public Use
  Company Number: KR-B.I. PHARMACEUTICALS,INC./RIDGEFIELD-2014-BI-05150BI

PATIENT
  Age: 70 Year
  Sex: Female
  Weight: 45.7 kg

DRUGS (6)
  1. AFATINIB [Suspect]
     Indication: NON-SMALL CELL LUNG CANCER
     Dosage: 40 MG
     Route: 048
     Dates: start: 20131229, end: 20140110
  2. AFATINIB [Suspect]
     Dosage: 30 MG
     Route: 048
     Dates: start: 20140112, end: 20140117
  3. OXYCODONE [Concomitant]
     Indication: PAIN
     Dosage: 30 MG
     Route: 048
     Dates: start: 2012
  4. CELECOXIB [Concomitant]
     Indication: CELLULITIS
     Dosage: 400 MG
     Route: 048
     Dates: start: 20131126
  5. CODEINE [Concomitant]
     Indication: COUGH
     Dosage: 60 MG
     Route: 048
     Dates: start: 2012
  6. IRCODON [Concomitant]
     Indication: PAIN
     Dosage: 30 MG
     Route: 048
     Dates: start: 2012

REACTIONS (1)
  - Pancreatitis acute [Recovered/Resolved]
